FAERS Safety Report 23473336 (Version 1)
Quarter: 2024Q1

REPORT INFORMATION
  Report Type: Spontaneous
  Country: US (occurrence: US)
  Receive Date: 20240203
  Receipt Date: 20240203
  Transmission Date: 20240409
  Serious: Yes (Hospitalization)
  Sender: FDA-Public Use
  Company Number: US-AMGEN-USASP2024019127

PATIENT
  Sex: Male

DRUGS (1)
  1. VECTIBIX [Suspect]
     Active Substance: PANITUMUMAB
     Indication: Neoplasm malignant
     Dosage: UNK, Q2WK
     Route: 065

REACTIONS (1)
  - Hospitalisation [Unknown]
